FAERS Safety Report 7357094-3 (Version None)
Quarter: 2011Q1

REPORT INFORMATION
  Report Type: 
  Country: None (occurrence: None)
  Receive Date: 20110310
  Receipt Date: 20110310
  Transmission Date: 20110831
  Serious: Yes (Hospitalization)
  Sender: FDA-Public Use
  Company Number: None

PATIENT
  Age: 64 Year
  Sex: Male
  Weight: 46.7 kg

DRUGS (1)
  1. PROPRANOLOL [Suspect]
     Indication: HYPERTENSION
     Dosage: 60 MG EVERY DAY PO
     Route: 048
     Dates: start: 20101129, end: 20101217

REACTIONS (4)
  - SYNCOPE [None]
  - DIZZINESS [None]
  - BRADYCARDIA [None]
  - HYPOTENSION [None]
